FAERS Safety Report 22165323 (Version 2)
Quarter: 2023Q2

REPORT INFORMATION
  Report Type: Spontaneous
  Country: IN (occurrence: IN)
  Receive Date: 20230403
  Receipt Date: 20230411
  Transmission Date: 20230722
  Serious: Yes (Hospitalization, Other)
  Sender: FDA-Public Use
  Company Number: IN-ALKEM LABORATORIES LIMITED-IN-ALKEM-2023-03476

PATIENT
  Age: 3 Decade
  Sex: Male

DRUGS (5)
  1. LEVETIRACETAM [Suspect]
     Active Substance: LEVETIRACETAM
     Indication: Seizure
     Dosage: 500 MILLIGRAM, BID (TWICE DAILY)
     Route: 065
  2. LEVETIRACETAM [Suspect]
     Active Substance: LEVETIRACETAM
     Dosage: 1500 MILLIGRAM, BID (TWICE DAILY) FOUR YEARS LATER
     Route: 065
  3. PHENYTOIN [Suspect]
     Active Substance: PHENYTOIN
     Indication: Seizure
     Dosage: 300 MILLIGRAM, OD (ONCE DAILY) INITIALLY
     Route: 065
  4. CLOBAZAM [Concomitant]
     Active Substance: CLOBAZAM
     Indication: Seizure
     Dosage: 5 MILLIGRAM, OD (ONCE A DAY)
     Route: 065
  5. CLOBAZAM [Concomitant]
     Active Substance: CLOBAZAM
     Indication: Disease recurrence

REACTIONS (3)
  - Tubulointerstitial nephritis [Recovering/Resolving]
  - Respiratory distress [Unknown]
  - Hypervolaemia [Recovering/Resolving]
